FAERS Safety Report 21614528 (Version 2)
Quarter: 2023Q1

REPORT INFORMATION
  Report Type: Report from Study
  Country: CA (occurrence: CA)
  Receive Date: 20221118
  Receipt Date: 20230105
  Transmission Date: 20230418
  Serious: Yes (Death, Life-Threatening)
  Sender: FDA-Public Use
  Company Number: CA-002147023-NVSC2022CA259438

PATIENT
  Age: 57 Year
  Sex: Male

DRUGS (1)
  1. TAFINLAR [Suspect]
     Active Substance: DABRAFENIB MESYLATE
     Indication: Splenomegaly
     Dosage: 150 MG, BID
     Route: 048
     Dates: start: 20210514, end: 202203

REACTIONS (4)
  - Splenomegaly [Fatal]
  - Disease progression [Fatal]
  - Treatment failure [Fatal]
  - Off label use [Fatal]

NARRATIVE: CASE EVENT DATE: 20220408
